FAERS Safety Report 9353600 (Version 1)
Quarter: 2013Q2

REPORT INFORMATION
  Report Type: Spontaneous
  Country: US (occurrence: None)
  Receive Date: 20130617
  Receipt Date: 20130617
  Transmission Date: 20140414
  Serious: Yes (Hospitalization)
  Sender: FDA-Public Use
  Company Number: None

PATIENT
  Age: 58 Year
  Sex: Female
  Weight: 98.43 kg

DRUGS (7)
  1. NITROFURANTOIN [Suspect]
     Indication: PROPHYLAXIS URINARY TRACT INFECTION
     Route: 048
  2. SINGULAIR [Concomitant]
  3. CRESTOR [Concomitant]
  4. PRO-AIR INHALER PRN [Concomitant]
  5. ESOMEPRAZOLE [Concomitant]
  6. DOXYCYCLINE [Concomitant]
  7. FEXOFENADINE [Concomitant]

REACTIONS (1)
  - Asthma [None]
